FAERS Safety Report 6489772-2 (Version None)
Quarter: 2009Q4

REPORT INFORMATION
  Report Type: 
  Country: None (occurrence: None)
  Receive Date: 20091207
  Receipt Date: 20091123
  Transmission Date: 20100525
  Serious: Yes (Death)
  Sender: FDA-Public Use
  Company Number: 2009AC000401

PATIENT
  Age: 73 Year
  Sex: Male

DRUGS (33)
  1. DIGOXIN [Suspect]
     Dosage: 125 MCG;PO
     Route: 048
     Dates: start: 20030101
  2. FUROSEMIDE [Concomitant]
  3. TOPROL-XL [Concomitant]
  4. NEXIUM [Concomitant]
  5. SUCRALFATE [Concomitant]
  6. FLOVENT [Concomitant]
  7. SPIRIVA [Concomitant]
  8. LISINOPRIL [Concomitant]
  9. POTASSIUM CHLORIDE [Concomitant]
  10. CARTIA XT [Concomitant]
  11. XIBROM [Concomitant]
  12. DILTIAZEM [Concomitant]
  13. PREVPAC [Concomitant]
  14. WARFARIN SODIUM [Concomitant]
  15. METOPROLOL TARTRATE [Concomitant]
  16. NITROFURANTOIN [Concomitant]
  17. SPIRONOLACTONE [Concomitant]
  18. DIOVAN [Concomitant]
  19. LASIX [Concomitant]
  20. NEXIUM [Concomitant]
  21. FERROUS SULFATE TAB [Concomitant]
  22. FLOVENT [Concomitant]
  23. SPIRIVA [Concomitant]
  24. K-DUR [Concomitant]
  25. ZAROXOLYN [Concomitant]
  26. CARAFATE [Concomitant]
  27. XOPENEX [Concomitant]
  28. ATROVENT [Concomitant]
  29. LOTRIMIN [Concomitant]
  30. NEO-SYNEPHRINOL [Concomitant]
  31. ALBUMIN (HUMAN) [Concomitant]
  32. EPINEPHRINE [Concomitant]
  33. COUMADIN [Concomitant]

REACTIONS (29)
  - ANAEMIA [None]
  - AORTIC STENOSIS [None]
  - ATRIAL FIBRILLATION [None]
  - BRADYCARDIA [None]
  - CARDIAC FAILURE CONGESTIVE [None]
  - CARDIOMEGALY [None]
  - CELLULITIS [None]
  - CHEST X-RAY ABNORMAL [None]
  - DECREASED APPETITE [None]
  - DIZZINESS [None]
  - DYSPNOEA [None]
  - ELECTROCARDIOGRAM CHANGE [None]
  - ELECTROCARDIOGRAM ST-T SEGMENT ABNORMAL [None]
  - EMOTIONAL DISORDER [None]
  - FAECES DISCOLOURED [None]
  - FAMILY STRESS [None]
  - GASTROOESOPHAGEAL REFLUX DISEASE [None]
  - HYPOTENSION [None]
  - INJURY [None]
  - LOSS OF CONSCIOUSNESS [None]
  - LOSS OF EMPLOYMENT [None]
  - MULTIPLE INJURIES [None]
  - PAIN [None]
  - PULMONARY HYPERTENSION [None]
  - RENAL FAILURE ACUTE [None]
  - SLEEP APNOEA SYNDROME [None]
  - SOCIAL PROBLEM [None]
  - TROPONIN INCREASED [None]
  - VENTRICULAR ARRHYTHMIA [None]
